FAERS Safety Report 19422213 (Version 1)
Quarter: 2021Q2

REPORT INFORMATION
  Report Type: Spontaneous
  Country: US (occurrence: US)
  Receive Date: 20210616
  Receipt Date: 20210616
  Transmission Date: 20210717
  Serious: No
  Sender: FDA-Public Use
  Company Number: US-TEVA-2021-US-1919565

PATIENT
  Age: 58 Year
  Sex: Female

DRUGS (1)
  1. BENZATROPINE [Suspect]
     Active Substance: BENZTROPINE
     Route: 065

REACTIONS (3)
  - Drug ineffective [Unknown]
  - Speech disorder [Unknown]
  - Nightmare [Unknown]
